FAERS Safety Report 24380217 (Version 4)
Quarter: 2025Q1

REPORT INFORMATION
  Report Type: Report from Study
  Country: US (occurrence: US)
  Receive Date: 20240930
  Receipt Date: 20250310
  Transmission Date: 20250408
  Serious: Yes (Other)
  Sender: UCB
  Company Number: US-UCBSA-2024048628

PATIENT
  Age: 10 Year
  Sex: Male
  Weight: 36.43 kg

DRUGS (3)
  1. FINTEPLA [Suspect]
     Active Substance: FENFLURAMINE
     Indication: Lennox-Gastaut syndrome
     Dosage: 5.2 MILLILITER, 2X/DAY (BID)
     Route: 048
     Dates: start: 20230515
  2. FINTEPLA [Suspect]
     Active Substance: FENFLURAMINE
     Dosage: 4.7 MILLILITER, 2X/DAY (BID)
     Route: 048
     Dates: start: 20230601
  3. FINTEPLA [Suspect]
     Active Substance: FENFLURAMINE
     Dosage: 5.2 MILLILITER, 2X/DAY (BID)

REACTIONS (2)
  - Seizure [Not Recovered/Not Resolved]
  - Cough [Not Recovered/Not Resolved]

NARRATIVE: CASE EVENT DATE: 20240801
